FAERS Safety Report 20577645 (Version 1)
Quarter: 2022Q1

REPORT INFORMATION
  Report Type: Spontaneous
  Country: US (occurrence: None)
  Receive Date: 20220309
  Receipt Date: 20220309
  Transmission Date: 20220423
  Serious: Yes (Life-Threatening, Hospitalization, Disabling)
  Sender: FDA-Public Use
  Company Number: None

PATIENT
  Age: 32 Year
  Sex: Female
  Weight: 62.1 kg

DRUGS (4)
  1. BENZEDREX NASAL DECONGESTANT [Suspect]
     Active Substance: PROPYLHEXEDRINE
     Indication: Product used for unknown indication
     Dosage: DAILY ORAL?
     Route: 048
  2. VITAMIN B12 [Concomitant]
     Active Substance: CYANOCOBALAMIN
  3. LIONS MANE [Concomitant]
  4. TYROSINE [Concomitant]
     Active Substance: TYROSINE

REACTIONS (3)
  - Euphoric mood [None]
  - Quality of life decreased [None]
  - Intentional product use issue [None]

NARRATIVE: CASE EVENT DATE: 20200901
